FAERS Safety Report 6076050-9 (Version None)
Quarter: 2009Q1

REPORT INFORMATION
  Report Type: 
  Country: None (occurrence: None)
  Receive Date: 20090212
  Receipt Date: 20090206
  Transmission Date: 20090719
  Serious: Yes (Other)
  Sender: FDA-Public Use
  Company Number: US-ASTRAZENECA-2008UW28747

PATIENT
  Age: 62 Year
  Sex: Male

DRUGS (12)
  1. SEROQUEL [Suspect]
     Indication: DEPRESSION
     Route: 048
     Dates: start: 20031001, end: 20070501
  2. SEROQUEL [Suspect]
     Indication: ANXIETY
     Route: 048
     Dates: start: 20031001, end: 20070501
  3. SEROQUEL [Suspect]
     Indication: SUICIDAL IDEATION
     Route: 048
     Dates: start: 20031001, end: 20070501
  4. RESTORIL [Concomitant]
  5. XANAX [Concomitant]
  6. WELLBUTRIN [Concomitant]
  7. CYMBALTA [Concomitant]
  8. TRAZODONE HCL [Concomitant]
  9. EFFEXOR [Concomitant]
  10. LEXAPRO [Concomitant]
  11. NEURONTIN [Concomitant]
  12. ZOLOFT [Concomitant]

REACTIONS (17)
  - AMNESIA [None]
  - ANGER [None]
  - DRUG WITHDRAWAL CONVULSIONS [None]
  - HEADACHE [None]
  - HYPERTENSION [None]
  - INSOMNIA [None]
  - NIGHT SWEATS [None]
  - NIGHTMARE [None]
  - PAIN [None]
  - PANCREATITIS ACUTE [None]
  - PARANOIA [None]
  - RENAL FAILURE [None]
  - ROAD TRAFFIC ACCIDENT [None]
  - SUICIDE ATTEMPT [None]
  - TARDIVE DYSKINESIA [None]
  - TREMOR [None]
  - VOMITING [None]
